FAERS Safety Report 4283931-5 (Version None)
Quarter: 2004Q1

REPORT INFORMATION
  Report Type: 
  Country: None (occurrence: None)
  Receive Date: 20040115
  Receipt Date: 20030512
  Transmission Date: 20041129
  Serious: Yes (Other)
  Sender: FDA-Public Use
  Company Number: NSADSS2003022848

PATIENT
  Age: 46 Year
  Sex: Female
  Weight: 71.6683 kg

DRUGS (11)
  1. DOXIL [Suspect]
     Indication: CERVIX CARCINOMA
     Dosage: 60 MG, 1 IN 4 WEEK, INTRAVENOUS DRIP
     Route: 041
     Dates: start: 20030301
  2. OXYCONTIN [Concomitant]
  3. DURAGESIC [Concomitant]
  4. PERCOCET [Concomitant]
  5. CELEBREX [Concomitant]
  6. NEURONTIN [Concomitant]
  7. COUMADIN [Concomitant]
  8. ELAVIL [Concomitant]
  9. VITAMIN B6 [Concomitant]
  10. ACTIQ [Concomitant]
  11. IRON [Concomitant]

REACTIONS (1)
  - RENAL FAILURE ACUTE [None]
